FAERS Safety Report 11741465 (Version 1)
Quarter: 2015Q4

REPORT INFORMATION
  Report Type: Spontaneous
  Country: US (occurrence: US)
  Receive Date: 20151116
  Receipt Date: 20151116
  Transmission Date: 20160304
  Serious: No
  Sender: FDA-Public Use
  Company Number: US-B.I. PHARMACEUTICALS,INC./RIDGEFIELD-2015-BI-61272BP

PATIENT
  Sex: Male
  Weight: 54 kg

DRUGS (1)
  1. SPIRIVA [Suspect]
     Active Substance: TIOTROPIUM BROMIDE MONOHYDRATE
     Indication: PRODUCT USED FOR UNKNOWN INDICATION
     Route: 055

REACTIONS (4)
  - Dyspnoea [Recovered/Resolved]
  - Nasal congestion [Recovered/Resolved]
  - Oral pain [Recovered/Resolved]
  - Dry mouth [Recovered/Resolved]
